FAERS Safety Report 8589191-9 (Version None)
Quarter: 2012Q3

REPORT INFORMATION
  Report Type: 
  Country: None (occurrence: None)
  Receive Date: 20120813
  Receipt Date: 20120801
  Transmission Date: 20120928
  Serious: Yes (Other)
  Sender: FDA-Public Use
  Company Number: US-JNJFOC-20120704090

PATIENT
  Sex: Female

DRUGS (2)
  1. TOPAMAX [Suspect]
     Indication: BIPOLAR DISORDER
     Route: 048
     Dates: start: 20040201, end: 20120101
  2. TOPAMAX [Suspect]
     Route: 048

REACTIONS (7)
  - OLIGOHYDRAMNIOS [None]
  - MATERNAL EXPOSURE DURING PREGNANCY [None]
  - ANXIETY [None]
  - FOETAL GROWTH RESTRICTION [None]
  - STRESS [None]
  - DEPRESSION [None]
  - PREMATURE DELIVERY [None]
